FAERS Safety Report 5216306-2 (Version None)
Quarter: 2007Q1

REPORT INFORMATION
  Report Type: 
  Country: None (occurrence: None)
  Receive Date: 20070118
  Receipt Date: 20070104
  Transmission Date: 20070707
  Serious: Yes (Other)
  Sender: FDA-Public Use
  Company Number: 012767

PATIENT
  Age: 76 Year
  Sex: Female

DRUGS (20)
  1. PRIALT [Suspect]
     Indication: PROCEDURAL PAIN
     Dosage: SEE IMAGE
     Route: 037
     Dates: start: 20050801, end: 20050101
  2. PRIALT [Suspect]
     Indication: PROCEDURAL PAIN
     Dosage: SEE IMAGE
     Route: 037
     Dates: start: 20050101, end: 20051001
  3. PRIALT [Suspect]
     Indication: PROCEDURAL PAIN
     Dosage: SEE IMAGE
     Route: 037
     Dates: start: 20060101, end: 20060101
  4. PRIALT [Suspect]
     Indication: PROCEDURAL PAIN
     Dosage: SEE IMAGE
     Route: 037
     Dates: end: 20060101
  5. PRIALT [Suspect]
     Indication: PROCEDURAL PAIN
     Dosage: SEE IMAGE
     Route: 037
     Dates: start: 20051001
  6. PRIALT [Suspect]
     Indication: PROCEDURAL PAIN
     Dosage: SEE IMAGE
     Route: 037
     Dates: start: 20060101
  7. HYDROMORPHONE HCL [Concomitant]
  8. BACLOFEN [Concomitant]
  9. AVELOX [Concomitant]
  10. EVISTA [Concomitant]
  11. TOPAMAX [Concomitant]
  12. HYDROCODONE BITARTRATE [Concomitant]
  13. AVAPRO [Concomitant]
  14. FUROSEMIDE [Concomitant]
  15. LIPITOR [Concomitant]
  16. MIDRIN (DICHLORALPHENAZONE, ISOMETHEPTENE, PARACETAMOL) [Concomitant]
  17. PLAVIX [Concomitant]
  18. SPIRONOLACTONE [Concomitant]
  19. SYNTHROID [Concomitant]
  20. ZYRTEC [Concomitant]

REACTIONS (9)
  - ASTHENIA [None]
  - COORDINATION ABNORMAL [None]
  - DIZZINESS [None]
  - DYSAESTHESIA [None]
  - FALL [None]
  - OEDEMA PERIPHERAL [None]
  - PERONEAL NERVE PALSY [None]
  - ROAD TRAFFIC ACCIDENT [None]
  - SOMNOLENCE [None]
